FAERS Safety Report 9528258 (Version 3)
Quarter: 2013Q4

REPORT INFORMATION
  Report Type: Report from Study
  Country: US (occurrence: US)
  Receive Date: 20130917
  Receipt Date: 20131107
  Transmission Date: 20140711
  Serious: Yes (Other)
  Sender: FDA-Public Use
  Company Number: PHEH2013US012119

PATIENT
  Sex: Male
  Weight: 81.63 kg

DRUGS (3)
  1. TASIGNA [Suspect]
     Indication: CHRONIC MYELOID LEUKAEMIA
     Dosage: 400 MG, Q12H
     Route: 048
     Dates: start: 20100430
  2. TASIGNA [Suspect]
     Dosage: 200 MG, Q12H
     Route: 048
     Dates: start: 201304
  3. GABAPENTIN [Concomitant]

REACTIONS (8)
  - Trigeminal neuralgia [Unknown]
  - Contusion [Unknown]
  - Arthralgia [Unknown]
  - Bone pain [Unknown]
  - Fatigue [Unknown]
  - Asthenia [Unknown]
  - Cluster headache [Unknown]
  - Oral candidiasis [Unknown]
